FAERS Safety Report 7042443-6 (Version None)
Quarter: 2010Q4

REPORT INFORMATION
  Report Type: 
  Country: None (occurrence: None)
  Receive Date: 20101013
  Receipt Date: 20100621
  Transmission Date: 20110411
  Serious: No
  Sender: FDA-Public Use
  Company Number: US-ASTRAZENECA-2010SE28882

PATIENT
  Age: 70 Year
  Sex: Male
  Weight: 83.5 kg

DRUGS (2)
  1. SYMBICORT [Suspect]
     Dosage: 160/4.5 UG TWO PUFFS TWO TIMES A DAY
     Route: 055
  2. NASONEX [Concomitant]

REACTIONS (3)
  - DYSPNOEA [None]
  - NASAL CONGESTION [None]
  - WHEEZING [None]
